FAERS Safety Report 24977544 (Version 4)
Quarter: 2025Q2

REPORT INFORMATION
  Report Type: Spontaneous
  Country: US (occurrence: US)
  Receive Date: 20250217
  Receipt Date: 20250513
  Transmission Date: 20250716
  Serious: No
  Sender: MYLAN
  Company Number: US-MYLANLABS-2025M1012024

PATIENT
  Age: 30 Year
  Sex: Female
  Weight: 97.52 kg

DRUGS (8)
  1. EPINEPHRINE [Suspect]
     Active Substance: EPINEPHRINE
     Indication: Food allergy
     Route: 065
  2. EPINEPHRINE [Suspect]
     Active Substance: EPINEPHRINE
  3. EPINEPHRINE [Suspect]
     Active Substance: EPINEPHRINE
  4. EPINEPHRINE [Suspect]
     Active Substance: EPINEPHRINE
     Route: 065
  5. EPINEPHRINE [Suspect]
     Active Substance: EPINEPHRINE
     Route: 065
  6. EPINEPHRINE [Suspect]
     Active Substance: EPINEPHRINE
  7. EPINEPHRINE [Suspect]
     Active Substance: EPINEPHRINE
  8. EPINEPHRINE [Suspect]
     Active Substance: EPINEPHRINE
     Route: 065

REACTIONS (2)
  - Liquid product physical issue [Unknown]
  - Product quality issue [Unknown]

NARRATIVE: CASE EVENT DATE: 20250201
